FAERS Safety Report 5853174-X (Version None)
Quarter: 2008Q3

REPORT INFORMATION
  Report Type: 
  Country: None (occurrence: None)
  Receive Date: 20080821
  Receipt Date: 20080819
  Transmission Date: 20090109
  Serious: Yes (Hospitalization)
  Sender: FDA-Public Use
  Company Number: JP-BOEHRINGER INGELHEIM GMBH, GERMANY-2008-BP-10663NB

PATIENT
  Sex: Female

DRUGS (14)
  1. MICARDIS [Suspect]
     Indication: HYPERTENSION
     Route: 048
     Dates: start: 20061201, end: 20080709
  2. DEPAS [Suspect]
     Indication: INSOMNIA
     Route: 048
     Dates: start: 20040401, end: 20080708
  3. LUPRAC [Suspect]
     Indication: CARDIAC FAILURE CONGESTIVE
     Route: 048
     Dates: start: 20080501, end: 20080709
  4. CEROCRAL [Concomitant]
     Indication: DIZZINESS
     Route: 048
     Dates: start: 20040401
  5. SIGMART [Concomitant]
     Indication: PRINZMETAL ANGINA
     Route: 048
     Dates: start: 20051201
  6. ALINAMIN-F (FURSULTIAMINE) [Concomitant]
     Indication: VITAMIN B1 DEFICIENCY
     Route: 048
     Dates: start: 20080401
  7. JUVELA N (TOCOPHEROL NICOTINATE) [Concomitant]
     Indication: VASCULAR INSUFFICIENCY
     Route: 048
     Dates: start: 20040401
  8. HERBESSER R [Concomitant]
     Indication: PRINZMETAL ANGINA
     Route: 048
     Dates: start: 20051001
  9. LASIX [Concomitant]
     Indication: CARDIAC FAILURE CONGESTIVE
     Route: 048
     Dates: start: 20080301
  10. ROCALTROL [Concomitant]
     Indication: OSTEOPOROSIS
     Route: 048
     Dates: start: 20040401
  11. MAALOX (ALUMINIUM HYDROXIDE_MAGNESIUM HYDROXIDE) [Concomitant]
     Indication: GASTRITIS
     Route: 048
     Dates: start: 20040901
  12. ITOROL [Concomitant]
     Indication: PRINZMETAL ANGINA
     Route: 048
     Dates: start: 20040701
  13. FRANDOL S [Concomitant]
     Indication: PRINZMETAL ANGINA
     Route: 062
     Dates: start: 20060401
  14. OPALMON [Concomitant]
     Indication: SPINAL OSTEOARTHRITIS
     Route: 048
     Dates: start: 20040401

REACTIONS (2)
  - MUSCULAR WEAKNESS [None]
  - RHABDOMYOLYSIS [None]
